FAERS Safety Report 4709675-0 (Version None)
Quarter: 2005Q3

REPORT INFORMATION
  Report Type: 
  Country: None (occurrence: None)
  Receive Date: 20050707
  Receipt Date: 20050621
  Transmission Date: 20060218
  Serious: Yes (Other)
  Sender: FDA-Public Use
  Company Number: USA0506101040

PATIENT
  Age: 70 Year
  Sex: Female

DRUGS (1)
  1. FORTEO [Suspect]
     Indication: OSTEOPOROSIS
     Dates: start: 20050510, end: 20050101

REACTIONS (5)
  - EOSINOPHILIA [None]
  - HYPERSENSITIVITY [None]
  - PAIN IN EXTREMITY [None]
  - RASH [None]
  - WHITE BLOOD CELL COUNT INCREASED [None]
